FAERS Safety Report 9523780 (Version 1)
Quarter: 2013Q3

REPORT INFORMATION
  Report Type: Report from Study
  Country: US (occurrence: US)
  Receive Date: 20130916
  Receipt Date: 20130916
  Transmission Date: 20140515
  Serious: Yes (Other)
  Sender: FDA-Public Use
  Company Number: US-ROCHE-1271753

PATIENT
  Age: 32 Year
  Sex: Female
  Weight: 64.01 kg

DRUGS (8)
  1. XOLAIR [Suspect]
     Indication: ASTHMA
     Route: 058
     Dates: start: 20130819
  2. XOLAIR [Suspect]
     Indication: URTICARIA CHRONIC
  3. XOLAIR [Suspect]
     Indication: OFF LABEL USE
  4. ALLEGRA [Concomitant]
     Indication: HYPERSENSITIVITY
  5. BENADRYL (UNITED STATES) [Concomitant]
  6. ADVAIR [Concomitant]
     Dosage: 50/50
     Route: 065
  7. THYROXINE [Concomitant]
  8. SPIRONOLACTONE [Concomitant]

REACTIONS (2)
  - Anaphylactoid reaction [Recovered/Resolved]
  - Off label use [Unknown]
